FAERS Safety Report 5365034-1 (Version None)
Quarter: 2007Q2

REPORT INFORMATION
  Report Type: 
  Country: None (occurrence: None)
  Receive Date: 20070621
  Receipt Date: 20070618
  Transmission Date: 20071010
  Serious: Yes (Congenital Anomaly, Other)
  Sender: FDA-Public Use
  Company Number: GB-JNJFOC-20070604318

PATIENT

DRUGS (1)
  1. RISPERIDONE [Suspect]
     Indication: DRUG EXPOSURE DURING PREGNANCY

REACTIONS (2)
  - CONGENITAL HEART VALVE DISORDER [None]
  - VENTRICULAR HYPOPLASIA [None]
